FAERS Safety Report 9482261 (Version 1)
Quarter: 2013Q3

REPORT INFORMATION
  Report Type: Spontaneous
  Country: JP (occurrence: JP)
  Receive Date: 20130828
  Receipt Date: 20130828
  Transmission Date: 20140515
  Serious: Yes (Death)
  Sender: FDA-Public Use
  Company Number: JP-ASTELLAS-2013JP008841

PATIENT
  Age: 65 Year
  Sex: Male

DRUGS (19)
  1. FUNGUARD [Suspect]
     Indication: ASPERGILLUS INFECTION
     Dosage: UNK
     Route: 065
     Dates: start: 200612
  2. FUNGUARD [Suspect]
     Indication: ASPERGILLUS TEST POSITIVE
  3. FUNGUARD [Suspect]
     Indication: ASPERGILLUS TEST
  4. FUNGUARD [Suspect]
     Indication: FUNGAL INFECTION
  5. FUNGUARD [Suspect]
     Indication: PULMONARY CAVITATION
  6. FUNGUARD [Suspect]
     Indication: LUNG INFILTRATION
  7. VORICONAZOLE [Concomitant]
     Indication: ASPERGILLUS INFECTION
     Dosage: UNK
     Route: 065
     Dates: start: 200612
  8. VORICONAZOLE [Concomitant]
     Indication: ASPERGILLUS TEST POSITIVE
  9. VORICONAZOLE [Concomitant]
     Indication: ASPERGILLUS TEST
  10. VORICONAZOLE [Concomitant]
     Indication: FUNGAL INFECTION
  11. VORICONAZOLE [Concomitant]
     Indication: PULMONARY CAVITATION
  12. VORICONAZOLE [Concomitant]
     Indication: LUNG INFILTRATION
  13. BROAD SPECTRUM ANTIBIOTICS [Concomitant]
     Indication: ASPERGILLUS INFECTION
     Dosage: UNK
     Route: 065
     Dates: start: 200612
  14. BROAD SPECTRUM ANTIBIOTICS [Concomitant]
     Indication: PSEUDOMONAS INFECTION
  15. BROAD SPECTRUM ANTIBIOTICS [Concomitant]
     Indication: ASPERGILLUS TEST POSITIVE
  16. BROAD SPECTRUM ANTIBIOTICS [Concomitant]
     Indication: ASPERGILLUS TEST
  17. BROAD SPECTRUM ANTIBIOTICS [Concomitant]
     Indication: FUNGAL INFECTION
  18. BROAD SPECTRUM ANTIBIOTICS [Concomitant]
     Indication: PULMONARY CAVITATION
  19. BROAD SPECTRUM ANTIBIOTICS [Concomitant]
     Indication: LUNG INFILTRATION

REACTIONS (2)
  - Drug ineffective [Unknown]
  - Bronchopulmonary aspergillosis [Fatal]
